FAERS Safety Report 23956437 (Version 1)
Quarter: 2024Q2

REPORT INFORMATION
  Report Type: Spontaneous
  Country: US (occurrence: US)
  Receive Date: 20240610
  Receipt Date: 20240610
  Transmission Date: 20240715
  Serious: No
  Sender: FDA-Public Use
  Company Number: US-SANOFI-02071157

PATIENT

DRUGS (1)
  1. DUPIXENT [Suspect]
     Active Substance: DUPILUMAB
     Dosage: UNK

REACTIONS (7)
  - Lymphadenopathy [Unknown]
  - Pyrexia [Unknown]
  - Oropharyngeal pain [Unknown]
  - Fatigue [Unknown]
  - Malaise [Unknown]
  - Weight decreased [Unknown]
  - Conjunctivitis [Unknown]
